FAERS Safety Report 7547985-2 (Version None)
Quarter: 2011Q2

REPORT INFORMATION
  Report Type: 
  Country: None (occurrence: None)
  Receive Date: 20110615
  Receipt Date: 20110606
  Transmission Date: 20111010
  Serious: Yes (Other)
  Sender: FDA-Public Use
  Company Number: FR-AMGEN-FRASP2011029633

PATIENT
  Age: 38 Year
  Sex: Female
  Weight: 67 kg

DRUGS (8)
  1. PROZAC [Concomitant]
     Indication: DEPRESSION
     Dosage: 0.5 DF, 1X/DAY
     Route: 048
     Dates: start: 20080701, end: 20110208
  2. PANTOPRAZOLE SODIUM [Concomitant]
     Indication: PROPHYLAXIS
     Dosage: 20 MG, 1X/DAY
     Route: 048
     Dates: start: 20080730, end: 20110315
  3. NABUMETONE [Concomitant]
     Indication: SPONDYLOARTHROPATHY
     Dosage: 2 G, 1X/DAY
     Route: 048
     Dates: start: 20110104
  4. TRAMADOL HCL [Concomitant]
     Indication: SPONDYLOARTHROPATHY
     Dosage: 2 DF, 1X/DAY
     Route: 048
     Dates: start: 20101112
  5. ENBREL [Suspect]
     Indication: PRODUCT USED FOR UNKNOWN INDICATION
     Dosage: 50 MG, WEEKLY
     Route: 058
     Dates: start: 20110104, end: 20110208
  6. PREDNISONE [Concomitant]
     Indication: SPONDYLOARTHROPATHY
     Dosage: 5 MG, 1X/DAY
     Route: 048
     Dates: start: 20110104, end: 20110408
  7. LEVOTHYROXINE SODIUM [Concomitant]
     Indication: HYPOTHYROIDISM
     Dosage: 150 UG, 1X/DAY
     Route: 048
     Dates: start: 20100727
  8. TRAMADOL HCL [Concomitant]
     Indication: SPONDYLOARTHROPATHY
     Dosage: 2 DF, 1X/DAY
     Route: 048
     Dates: start: 20101112

REACTIONS (2)
  - SARCOIDOSIS [None]
  - ECCHYMOSIS [None]
